FAERS Safety Report 24806843 (Version 1)
Quarter: 2025Q1

REPORT INFORMATION
  Report Type: Spontaneous
  Country: IT (occurrence: IT)
  Receive Date: 20250104
  Receipt Date: 20250104
  Transmission Date: 20250409
  Serious: Yes (Hospitalization, Other)
  Sender: JOHNSON AND JOHNSON
  Company Number: IT-JNTL CONSUMER HEALTH MIDDLE EAST FZ-LLC-20241208565

PATIENT
  Age: 63 Year
  Sex: Male
  Weight: 55 kg

DRUGS (6)
  1. LOPERAMIDE HYDROCHLORIDE [Suspect]
     Active Substance: LOPERAMIDE HYDROCHLORIDE
     Indication: Product used for unknown indication
     Dates: start: 20241205
  2. TUCATINIB [Suspect]
     Active Substance: TUCATINIB
     Indication: Product used for unknown indication
     Dosage: 600 MILLIGRAM. ONCE A DAY
     Dates: start: 20241119, end: 20241210
  3. OXALIPLATIN [Suspect]
     Active Substance: OXALIPLATIN
     Indication: Product used for unknown indication
     Dates: start: 20241205, end: 20241205
  4. LEUCOVORIN [Suspect]
     Active Substance: LEUCOVORIN\LEUCOVORIN CALCIUM
     Indication: Product used for unknown indication
     Dates: start: 20241205, end: 20241205
  5. FLUOROURACIL [Suspect]
     Active Substance: FLUOROURACIL
     Indication: Product used for unknown indication
     Route: 040
     Dates: start: 20241205, end: 20241205
  6. FLUOROURACIL [Suspect]
     Active Substance: FLUOROURACIL
     Dates: start: 20241205, end: 20241207

REACTIONS (1)
  - Syncope [Recovered/Resolved]

NARRATIVE: CASE EVENT DATE: 20241210
